FAERS Safety Report 8359459-X (Version None)
Quarter: 2012Q1

REPORT INFORMATION
  Report Type: 
  Country: None (occurrence: None)
  Receive Date: 20120315
  Receipt Date: 20110217
  Transmission Date: 20120608
  Serious: Yes (Hospitalization)
  Sender: FDA-Public Use
  Company Number: PHHY2011US09889

PATIENT
  Age: 50 Year
  Sex: Female
  Weight: 111.1313 kg

DRUGS (1)
  1. GILENYA [Suspect]
     Indication: MULTIPLE SCLEROSIS
     Dosage: 0.5 MG, QD, ORAL
     Route: 048
     Dates: start: 20110102

REACTIONS (6)
  - PAIN [None]
  - FATIGUE [None]
  - BLEPHAROSPASM [None]
  - HEART RATE DECREASED [None]
  - HEADACHE [None]
  - NAUSEA [None]
